FAERS Safety Report 9235069 (Version 3)
Quarter: 2013Q3

REPORT INFORMATION
  Report Type: Spontaneous
  Country: US (occurrence: US)
  Receive Date: 20130416
  Receipt Date: 20130813
  Transmission Date: 20140515
  Serious: Yes (Hospitalization, Other)
  Sender: FDA-Public Use
  Company Number: US-009507513-1304USA004734

PATIENT
  Age: 64 Year
  Sex: Male
  Weight: 83.9 kg

DRUGS (3)
  1. VICTRELIS [Suspect]
     Indication: CHRONIC HEPATITIS C
     Dosage: 4 CAPSULES BY MOUTH 3 TIMES A DAY STARTING ON DAY 29 OF THERAPY
     Route: 065
     Dates: start: 20130313
  2. PEGASYS [Suspect]
     Indication: CHRONIC HEPATITIS C
     Dosage: 180 UG, 1 IN 1 WK
     Route: 058
     Dates: start: 20130213, end: 20130724
  3. REBETOL [Suspect]
     Indication: CHRONIC HEPATITIS C
     Dosage: 1200 DAILY IN DIVIDED DOSES
     Route: 048
     Dates: start: 20130213, end: 20130724

REACTIONS (5)
  - Staphylococcal sepsis [Unknown]
  - Dizziness [Unknown]
  - Headache [Recovered/Resolved]
  - Fatigue [Recovered/Resolved]
  - Dysgeusia [Recovered/Resolved]
